FAERS Safety Report 6698199-X (Version None)
Quarter: 2010Q2

REPORT INFORMATION
  Report Type: 
  Country: None (occurrence: None)
  Receive Date: 20100427
  Receipt Date: 20100329
  Transmission Date: 20101027
  Serious: Yes (Life-Threatening, Hospitalization)
  Sender: FDA-Public Use
  Company Number: IT-BAYER-200828894GPV

PATIENT
  Age: 55 Year
  Sex: Male

DRUGS (26)
  1. CAMPATH [Suspect]
     Indication: PERIPHERAL T-CELL LYMPHOMA UNSPECIFIED
     Dosage: DAY -2, -1,0 / FIRST CYCLE 3, 10 , 20 MG
     Route: 058
     Dates: start: 20070723, end: 20070725
  2. CAMPATH [Suspect]
     Dosage: SECOND CYCLE
     Route: 058
     Dates: start: 20070816, end: 20070816
  3. PREDNISONE TAB [Suspect]
     Indication: PERIPHERAL T-CELL LYMPHOMA UNSPECIFIED
     Dosage: FIRST CYCLE
     Dates: start: 20070723, end: 20070726
  4. PREDNISONE TAB [Suspect]
     Dosage: SECOND CYCLE
     Dates: start: 20080816, end: 20080817
  5. CYCLOPHOSPHAMIDE [Suspect]
     Indication: PERIPHERAL T-CELL LYMPHOMA UNSPECIFIED
     Dosage: FIRST CYCLE 750 MG/M2
     Route: 065
     Dates: start: 20070723, end: 20070723
  6. CYCLOPHOSPHAMIDE [Suspect]
     Dosage: SECOND CYCLE 750 MG/M2
     Route: 065
     Dates: start: 20070816, end: 20070816
  7. DOXORUBICIN HCL [Suspect]
     Indication: PERIPHERAL T-CELL LYMPHOMA UNSPECIFIED
     Dosage: FIRST CYCLE
     Route: 065
     Dates: start: 20070723, end: 20070723
  8. DOXORUBICIN HCL [Suspect]
     Dosage: SECOND CYCLE
     Route: 065
     Dates: start: 20080816, end: 20080816
  9. VINCRISTINE [Suspect]
     Indication: PERIPHERAL T-CELL LYMPHOMA UNSPECIFIED
     Dosage: SECOND CYCLE
     Route: 065
     Dates: start: 20080816, end: 20080816
  10. VINCRISTINE [Suspect]
     Dosage: FIRST CYCLE
     Route: 065
     Dates: start: 20070723, end: 20070723
  11. CYCLOSPORINE [Suspect]
     Indication: PROPHYLAXIS AGAINST GRAFT VERSUS HOST DISEASE
     Dates: start: 20070623, end: 20080926
  12. TACROLIMUS [Suspect]
     Indication: PROPHYLAXIS AGAINST GRAFT VERSUS HOST DISEASE
     Dates: start: 20080927
  13. CYCLOPHOSPHAMIDE [Suspect]
     Indication: PERIPHERAL T-CELL LYMPHOMA UNSPECIFIED
     Dosage: SECOND CYCLE OF HIPER-C-HIDAM REGIMEN
     Dates: start: 20071031, end: 20071031
  14. CYCLOPHOSPHAMIDE [Suspect]
     Dosage: FIRST CYCLE OF HIPER-C-HIDAM REGIMEN
     Dates: start: 20070920, end: 20070920
  15. METHOTREXATE [Suspect]
     Indication: PERIPHERAL T-CELL LYMPHOMA UNSPECIFIED
     Route: 037
     Dates: start: 20070723, end: 20070723
  16. METHOTREXATE [Suspect]
     Route: 037
     Dates: start: 20070816, end: 20070816
  17. METHOTREXATE [Suspect]
     Dosage: FIRST CYCLE OF HYPER-C-HIDAM REGIMEN
     Dates: start: 20070920, end: 20070920
  18. METHOTREXATE [Suspect]
     Dosage: SECOND CYCLE OF HYPER-C-HIDAM
     Dates: start: 20071031, end: 20071031
  19. ARA-C [Suspect]
     Indication: PERIPHERAL T-CELL LYMPHOMA UNSPECIFIED
     Route: 037
     Dates: start: 20070723, end: 20070723
  20. ARA-C [Suspect]
     Dosage: SECOND CYCLE OF HYPER-C-HIDAM
     Dates: start: 20071101, end: 20071103
  21. ARA-C [Suspect]
     Dosage: FIRST CYCLE OF HYPER-C-HIDAM
     Dates: start: 20070921, end: 20070923
  22. ARA-C [Suspect]
     Route: 037
     Dates: start: 20070816, end: 20070816
  23. DEXAMETHASONE [Suspect]
     Indication: PERIPHERAL T-CELL LYMPHOMA UNSPECIFIED
     Route: 037
     Dates: start: 20070816, end: 20070816
  24. DEXAMETHASONE [Suspect]
     Route: 037
     Dates: start: 20070723, end: 20070723
  25. METFORMIN [Concomitant]
     Indication: DIABETES MELLITUS
  26. NEUPOGEN [Concomitant]
     Indication: PROPHYLAXIS

REACTIONS (1)
  - THROMBOTIC THROMBOCYTOPENIC PURPURA [None]
